FAERS Safety Report 19782078 (Version 2)
Quarter: 2021Q3

REPORT INFORMATION
  Report Type: Spontaneous
  Country: US (occurrence: US)
  Receive Date: 20210902
  Receipt Date: 20210916
  Transmission Date: 20211014
  Serious: Yes (Hospitalization)
  Sender: FDA-Public Use
  Company Number: US-TEVA-2021-US-1946927

PATIENT
  Age: 15 Year
  Sex: Female

DRUGS (2)
  1. NORETHINDRONE. [Suspect]
     Active Substance: NORETHINDRONE
     Indication: AMENORRHOEA
     Dosage: 3 TIMES DAILY
     Route: 048
  2. ETONOGESTREL [Suspect]
     Active Substance: ETONOGESTREL
     Indication: AMENORRHOEA
     Dosage: ETONOGESTREL?RELEASING IMPLANT
     Route: 065

REACTIONS (3)
  - Haemoperitoneum [Recovering/Resolving]
  - Haemorrhage [Recovering/Resolving]
  - Hepatic adenoma [Recovering/Resolving]
